FAERS Safety Report 10355490 (Version 2)
Quarter: 2014Q4

REPORT INFORMATION
  Report Type: Spontaneous
  Country: US (occurrence: None)
  Receive Date: 20140728
  Receipt Date: 20141106
  Transmission Date: 20150528
  Serious: Yes (Other)
  Sender: FDA-Public Use
  Company Number: JPI-P-022014

PATIENT
  Age: 23 Year
  Sex: Female
  Weight: 63.6 kg

DRUGS (6)
  1. NUVIGIL [Concomitant]
     Active Substance: ARMODAFINIL
  2. XYREM [Suspect]
     Active Substance: SODIUM OXYBATE
     Indication: FATIGUE
     Route: 048
     Dates: start: 20120605, end: 2012
  3. METFORMIN [Concomitant]
     Active Substance: METFORMIN HYDROCHLORIDE
  4. ZOLOFT [Suspect]
     Active Substance: SERTRALINE HYDROCHLORIDE
     Indication: DEPRESSION
     Dates: start: 2007
  5. LAMICTAL [Concomitant]
     Active Substance: LAMOTRIGINE
  6. XYREM [Suspect]
     Active Substance: SODIUM OXYBATE
     Indication: SOMNOLENCE
     Route: 048
     Dates: start: 20120605, end: 2012

REACTIONS (8)
  - Insomnia [None]
  - Anxiety [None]
  - Blood pressure increased [None]
  - Off label use [None]
  - Drug ineffective for unapproved indication [None]
  - Serotonin syndrome [None]
  - Tachycardia [None]
  - Fatigue [None]

NARRATIVE: CASE EVENT DATE: 20120605
